FAERS Safety Report 5191376-9 (Version None)
Quarter: 2006Q4

REPORT INFORMATION
  Report Type: 
  Country: None (occurrence: None)
  Receive Date: 20061226
  Receipt Date: 20030410
  Transmission Date: 20070319
  Serious: Yes (Hospitalization)
  Sender: FDA-Public Use
  Company Number: FR-MERCK-0304USA01396

PATIENT
  Age: 79 Year
  Sex: Male

DRUGS (3)
  1. MODURETIC 5-50 [Suspect]
     Route: 048
     Dates: start: 19980615, end: 20020615
  2. MODURETIC 5-50 [Suspect]
     Route: 048
     Dates: start: 20020901
  3. VALSARTAN [Concomitant]
     Route: 065
     Dates: start: 20020601, end: 20020801

REACTIONS (1)
  - ECZEMA [None]
